FAERS Safety Report 12242965 (Version 4)
Quarter: 2016Q2

REPORT INFORMATION
  Report Type: Report from Study
  Country: US (occurrence: US)
  Receive Date: 20160406
  Receipt Date: 20160503
  Transmission Date: 20160815
  Serious: Yes (Other)
  Sender: FDA-Public Use
  Company Number: US-MDT-ADR-2016-00226

PATIENT
  Age: 70 Year
  Sex: Male

DRUGS (15)
  1. BUPIVACAINE. [Suspect]
     Active Substance: BUPIVACAINE
     Dosage: 22.246MG/DAY
     Route: 037
  2. BUPIVACAINE. [Suspect]
     Active Substance: BUPIVACAINE
     Dosage: 16.806MG/DAY
     Route: 037
     Dates: start: 20140328
  3. DILAUDID [Suspect]
     Active Substance: HYDROMORPHONE HYDROCHLORIDE
     Dosage: 1.8539MG/DAY
     Route: 037
     Dates: start: 20140710
  4. DILAUDID [Suspect]
     Active Substance: HYDROMORPHONE HYDROCHLORIDE
     Dosage: 0.999MG/DAY
     Route: 037
     Dates: start: 20140120, end: 20140328
  5. DILAUDID [Suspect]
     Active Substance: HYDROMORPHONE HYDROCHLORIDE
     Dosage: 1.4005MG/DAY
     Route: 037
     Dates: start: 20140328
  6. BUPIVACAINE. [Suspect]
     Active Substance: BUPIVACAINE
     Dosage: 11.988MG/DAY
     Route: 037
     Dates: start: 20140120, end: 20140328
  7. COMPOUNDED BACLOFEN [Suspect]
     Active Substance: BACLOFEN
     Dosage: 407.85MCG/DAY
     Route: 037
     Dates: start: 20140710
  8. COMPOUNDED BACLOFEN [Suspect]
     Active Substance: BACLOFEN
     Dosage: 219.79MCG/DAY
     Route: 037
     Dates: start: 20140120, end: 20140328
  9. BUPIVACAINE. [Suspect]
     Active Substance: BUPIVACAINE
     Dosage: 19.834MG/DAY
     Route: 037
     Dates: start: 20140519, end: 20140710
  10. COMPOUNDED BACLOFEN [Suspect]
     Active Substance: BACLOFEN
     Dosage: 407.85MCG/DAY
     Route: 037
  11. DILAUDID [Suspect]
     Active Substance: HYDROMORPHONE HYDROCHLORIDE
     Dosage: 1.8539MG/DAY
     Route: 037
  12. COMPOUNDED BACLOFEN [Suspect]
     Active Substance: BACLOFEN
     Dosage: 363.62MCG/DAY
     Route: 037
     Dates: start: 20140519, end: 20140710
  13. BUPIVACAINE. [Suspect]
     Active Substance: BUPIVACAINE
     Dosage: 22.246MG/DAY
     Route: 037
     Dates: start: 20140710
  14. DILAUDID [Suspect]
     Active Substance: HYDROMORPHONE HYDROCHLORIDE
     Dosage: 1.6528MG/DAY
     Route: 037
     Dates: start: 20140519, end: 20140710
  15. COMPOUNDED BACLOFEN [Suspect]
     Active Substance: BACLOFEN
     Dosage: 308.11MCG/DAY
     Route: 037
     Dates: start: 20140328

REACTIONS (3)
  - Facial spasm [Recovered/Resolved]
  - Therapeutic response decreased [Recovered/Resolved]
  - Eye movement disorder [Recovered/Resolved]
